FAERS Safety Report 7419302-X (Version None)
Quarter: 2011Q2

REPORT INFORMATION
  Report Type: 
  Country: None (occurrence: None)
  Receive Date: 20110415
  Receipt Date: 20110413
  Transmission Date: 20111010
  Serious: Yes (Other)
  Sender: FDA-Public Use
  Company Number: US-ABBOTT-11P-163-0718867-00

PATIENT
  Sex: Male
  Weight: 118.04 kg

DRUGS (1)
  1. SIMCOR [Suspect]
     Indication: PRODUCT USED FOR UNKNOWN INDICATION
     Dates: start: 20100301

REACTIONS (6)
  - PROSTATOMEGALY [None]
  - ARTHROPATHY [None]
  - URINARY TRACT INFECTION [None]
  - PRURITUS [None]
  - DRY MOUTH [None]
  - GROIN PAIN [None]
